FAERS Safety Report 4869305-4 (Version None)
Quarter: 2005Q4

REPORT INFORMATION
  Report Type: 
  Country: None (occurrence: None)
  Receive Date: 20051230
  Receipt Date: 20051220
  Transmission Date: 20060501
  Serious: Yes (Other)
  Sender: FDA-Public Use
  Company Number: US-JNJFOC-20051201246

PATIENT
  Sex: Male
  Weight: 104.33 kg

DRUGS (8)
  1. TOPAMAX [Suspect]
     Route: 048
  2. TOPAMAX [Suspect]
     Route: 048
  3. TOPAMAX [Suspect]
     Route: 048
  4. TOPAMAX [Suspect]
     Route: 048
  5. TOPAMAX [Suspect]
     Indication: MIGRAINE
     Route: 048
  6. TOPAMAX [Suspect]
     Indication: EPILEPSY
     Route: 048
  7. ZOLOFT [Concomitant]
     Indication: DEPRESSION
  8. KLONAPIN [Concomitant]
     Indication: ANXIETY

REACTIONS (2)
  - BLINDNESS [None]
  - ENDOPHTHALMITIS [None]
